FAERS Safety Report 8285875-0 (Version None)
Quarter: 2012Q2

REPORT INFORMATION
  Report Type: 
  Country: None (occurrence: None)
  Receive Date: 20120413
  Receipt Date: 20120405
  Transmission Date: 20120825
  Serious: Yes (Life-Threatening, Hospitalization, Disabling, Other)
  Sender: FDA-Public Use
  Company Number: US-ELI_LILLY_AND_COMPANY-US201008002577

PATIENT
  Sex: Male

DRUGS (35)
  1. METOPROLOL TARTRATE [Concomitant]
  2. HUMALOG [Concomitant]
  3. ACTOS [Concomitant]
  4. PULMICORT [Concomitant]
  5. NIASPAN [Concomitant]
  6. SYNTHROID [Concomitant]
  7. PHENAZOPYRIDINE HCL TAB [Concomitant]
  8. PRILOSEC [Concomitant]
  9. ULORIC [Concomitant]
  10. XANAX [Concomitant]
  11. LIPITOR [Concomitant]
  12. ALBUTEROL [Concomitant]
  13. CELEXA [Concomitant]
  14. MORPHINE [Concomitant]
  15. AVINZA [Concomitant]
  16. NEXIUM [Concomitant]
  17. TRAZODONE HCL [Concomitant]
  18. FORTEO [Suspect]
     Indication: OSTEOPOROSIS
     Dosage: 20 UG, DAILY (1/D)
     Dates: start: 20091101
  19. HYOSCYAMINE [Concomitant]
  20. ZOLPIDEM [Concomitant]
  21. TESTOSTERONE [Concomitant]
  22. TAMSULOSIN HYDROCHLORIDE [Concomitant]
  23. PROMETHAZINE [Concomitant]
  24. MECLIZINE [Concomitant]
  25. COREG [Concomitant]
  26. FUROSEMIDE [Concomitant]
  27. VIAGRA [Concomitant]
  28. FLOMAX [Concomitant]
  29. PROPRANOLOL [Concomitant]
  30. CLINDAMYCIN [Concomitant]
  31. HYDROXYZINE [Concomitant]
  32. AMIODARONE HCL [Concomitant]
  33. ALDACTONE [Concomitant]
  34. POTASSIUM [Concomitant]
  35. ASPIRIN [Concomitant]

REACTIONS (20)
  - ATRIAL FIBRILLATION [None]
  - CEREBROVASCULAR ACCIDENT [None]
  - ABASIA [None]
  - FALL [None]
  - COORDINATION ABNORMAL [None]
  - HYPOAESTHESIA [None]
  - MENTAL IMPAIRMENT [None]
  - DISTURBANCE IN ATTENTION [None]
  - CHRONIC OBSTRUCTIVE PULMONARY DISEASE [None]
  - BRAIN INJURY [None]
  - HEMIPARESIS [None]
  - IRRITABLE BOWEL SYNDROME [None]
  - BALANCE DISORDER [None]
  - PNEUMONIA [None]
  - COMA [None]
  - ABDOMINAL PAIN [None]
  - CARDIO-RESPIRATORY ARREST [None]
  - MONOPLEGIA [None]
  - VISUAL IMPAIRMENT [None]
  - DIZZINESS [None]
